FAERS Safety Report 21098918 (Version 2)
Quarter: 2022Q3

REPORT INFORMATION
  Report Type: Other
  Country: US (occurrence: None)
  Receive Date: 20220719
  Receipt Date: 20220725
  Transmission Date: 20221026
  Serious: Yes (Hospitalization, Other)
  Sender: FDA-Public Use
  Company Number: US-ROCHE-3104796

PATIENT
  Age: 56 Year
  Sex: Male

DRUGS (3)
  1. OCREVUS [Suspect]
     Active Substance: OCRELIZUMAB
     Indication: Multiple sclerosis
     Dosage: INFUSE 300 MG IVX 1 DOSE, REPEAT IN 2 WEEKS, INFUSE 600 MG IV X 1 DOSE EVERY 6 MONTHS
     Route: 042
     Dates: start: 20190417
  2. PLEGRIDY [Concomitant]
     Active Substance: PEGINTERFERON BETA-1A
  3. PIRFENIDONE [Concomitant]
     Active Substance: PIRFENIDONE
     Route: 048

REACTIONS (4)
  - Myocardial infarction [Unknown]
  - Cerebrovascular accident [Unknown]
  - Pneumonia [Not Recovered/Not Resolved]
  - Product dose omission issue [Unknown]

NARRATIVE: CASE EVENT DATE: 20220501
